FAERS Safety Report 14995355 (Version 1)
Quarter: 2018Q2

REPORT INFORMATION
  Report Type: Spontaneous
  Country: US (occurrence: US)
  Receive Date: 20180521
  Receipt Date: 20180521
  Transmission Date: 20180711
  Serious: Yes (Disabling, Other)
  Sender: FDA-Public Use
  Company Number: None

PATIENT
  Age: 60 Year
  Sex: Female
  Weight: 63 kg

DRUGS (9)
  1. GUAFENESIN [Concomitant]
     Active Substance: GUAIFENESIN
  2. SERTRALINE [Concomitant]
     Active Substance: SERTRALINE HYDROCHLORIDE
  3. PRAMEPEXOLE [Concomitant]
  4. TRAMADOL. [Concomitant]
     Active Substance: TRAMADOL
  5. BUSPIRONE [Concomitant]
     Active Substance: BUSPIRONE HYDROCHLORIDE
  6. CIPROFLOXACIN. [Suspect]
     Active Substance: CIPROFLOXACIN
     Indication: POSTOPERATIVE WOUND INFECTION
     Route: 048
     Dates: start: 20170815, end: 20170825
  7. LORATIDINE [Concomitant]
     Active Substance: LORATADINE
  8. FISH OIL [Concomitant]
     Active Substance: FISH OIL
  9. HYDROXYZINE [Concomitant]
     Active Substance: HYDROXYZINE HYDROCHLORIDE

REACTIONS (11)
  - Arthralgia [None]
  - Tendonitis [None]
  - Fibromyalgia [None]
  - Walking aid user [None]
  - Pain [None]
  - Quality of life decreased [None]
  - Muscle spasms [None]
  - Gait inability [None]
  - Loss of employment [None]
  - Neuropathy peripheral [None]
  - Mobility decreased [None]

NARRATIVE: CASE EVENT DATE: 20180122
